FAERS Safety Report 5323831-2 (Version None)
Quarter: 2007Q2

REPORT INFORMATION
  Report Type: 
  Country: None (occurrence: None)
  Receive Date: 20070514
  Receipt Date: 20070510
  Transmission Date: 20071010
  Serious: Yes (Hospitalization)
  Sender: FDA-Public Use
  Company Number: B0470276A

PATIENT
  Age: 81 Year
  Sex: Female

DRUGS (9)
  1. AUGMENTIN '125' [Suspect]
     Dosage: 2G PER DAY
     Route: 042
     Dates: start: 20070407, end: 20070410
  2. BACTRIM DS [Suspect]
     Indication: LYMPHOPENIA
     Dosage: 1UNIT PER DAY
     Route: 048
     Dates: start: 20070408, end: 20070410
  3. ASPEGIC 1000 [Concomitant]
  4. PROZAC [Concomitant]
  5. TENORMIN [Concomitant]
  6. CORTANCYL [Concomitant]
  7. TAHOR [Concomitant]
  8. INIPOMP [Concomitant]
  9. ALLOPURINOL [Concomitant]

REACTIONS (2)
  - INFLAMMATION [None]
  - NEUTROPENIA [None]
